FAERS Safety Report 17109119 (Version 1)
Quarter: 2019Q4

REPORT INFORMATION
  Report Type: Spontaneous
  Country: FR (occurrence: FR)
  Receive Date: 20191204
  Receipt Date: 20191204
  Transmission Date: 20200122
  Serious: Yes (Hospitalization)
  Sender: FDA-Public Use
  Company Number: FR-PFIZER INC-2019514836

PATIENT
  Age: 76 Year
  Sex: Female

DRUGS (5)
  1. DIPROSONE [BETAMETHASONE DIPROPIONATE;BETAMETHASONE SODIUM PHOSPHATE] [Concomitant]
     Dosage: UNK
  2. RISPERIDONE. [Concomitant]
     Active Substance: RISPERIDONE
     Dosage: 1.5 MG, 1X/DAY
  3. AMLODIPINE [Suspect]
     Active Substance: AMLODIPINE BESYLATE
     Dosage: 1 DF, 1X/DAY
     Route: 048
     Dates: start: 20190626, end: 2019
  4. ATORVASTATIN [Concomitant]
     Active Substance: ATORVASTATIN
     Dosage: 10 MG, 1X/DAY
  5. KARDEGIC [Concomitant]
     Active Substance: ASPIRIN DL-LYSINE
     Dosage: 160 MG, 1X/DAY

REACTIONS (3)
  - Rash macular [Not Recovered/Not Resolved]
  - Erythema [Not Recovered/Not Resolved]
  - Pruritus [Not Recovered/Not Resolved]

NARRATIVE: CASE EVENT DATE: 201907
